FAERS Safety Report 20718781 (Version 1)
Quarter: 2022Q2

REPORT INFORMATION
  Report Type: Report from Study
  Country: US (occurrence: US)
  Receive Date: 20220418
  Receipt Date: 20220418
  Transmission Date: 20220721
  Serious: Yes (Hospitalization, Disabling, Other)
  Sender: FDA-Public Use
  Company Number: US-ABBVIE-22K-163-4316350-00

PATIENT
  Sex: Female
  Weight: 54.480 kg

DRUGS (5)
  1. HUMIRA [Suspect]
     Active Substance: ADALIMUMAB
     Indication: Rheumatoid arthritis
     Dosage: START DATE- MAYBE MORE THAN 10 YEARS AGO
     Route: 058
  2. VITAMIN D3 [Concomitant]
     Active Substance: CHOLECALCIFEROL
     Indication: Supplementation therapy
  3. LEFLUNOMIDE [Concomitant]
     Active Substance: LEFLUNOMIDE
     Indication: Rheumatoid arthritis
  4. SIMVASTATIN [Concomitant]
     Active Substance: SIMVASTATIN
     Indication: Blood cholesterol
  5. AMBIEN [Concomitant]
     Active Substance: ZOLPIDEM TARTRATE
     Indication: Sleep disorder

REACTIONS (16)
  - Stress fracture [Recovered/Resolved]
  - Oxygen saturation decreased [Recovered/Resolved]
  - Gait inability [Recovered/Resolved]
  - Weight bearing difficulty [Recovered/Resolved]
  - Pharyngeal swelling [Recovered/Resolved]
  - Swollen tongue [Recovered/Resolved]
  - Fall [Recovered/Resolved]
  - Hip arthroplasty [Unknown]
  - Abdominal distension [Recovered/Resolved]
  - Arthralgia [Recovered/Resolved]
  - Sepsis [Recovered/Resolved]
  - Weight decreased [Unknown]
  - Gait disturbance [Recovered/Resolved]
  - Depression [Unknown]
  - Pain in extremity [Not Recovered/Not Resolved]
  - Rash erythematous [Unknown]

NARRATIVE: CASE EVENT DATE: 20210101
